FAERS Safety Report 9835160 (Version 1)
Quarter: 2014Q1

REPORT INFORMATION
  Report Type: Spontaneous
  Country: US (occurrence: US)
  Receive Date: 20140122
  Receipt Date: 20140122
  Transmission Date: 20141002
  Serious: No
  Sender: FDA-Public Use
  Company Number: US-BRISTOL-MYERS SQUIBB COMPANY-19836022

PATIENT
  Age: 67 Year
  Sex: Female
  Weight: 57.59 kg

DRUGS (8)
  1. ELIQUIS [Suspect]
     Indication: ATRIAL FIBRILLATION
     Dosage: LOT: 2D69589A ?EXPIRATION DATE: APR2015
     Dates: start: 20131104
  2. ELIQUIS [Suspect]
     Indication: SUPRAVENTRICULAR TACHYCARDIA
     Dosage: LOT: 2D69589A ?EXPIRATION DATE: APR2015
     Dates: start: 20131104
  3. FLECAINIDE [Concomitant]
  4. BISOPROLOL [Concomitant]
  5. DIGOXIN [Concomitant]
  6. VERAPAMIL ER [Concomitant]
  7. LEVOTHYROXINE [Concomitant]
  8. GABAPENTIN [Concomitant]

REACTIONS (4)
  - Eye disorder [Unknown]
  - Balance disorder [Unknown]
  - Headache [Unknown]
  - Nausea [Unknown]
